FAERS Safety Report 8950867 (Version 1)
Quarter: 2012Q4

REPORT INFORMATION
  Report Type: Spontaneous
  Country: US (occurrence: None)
  Receive Date: 20121130
  Receipt Date: 20121130
  Transmission Date: 20130627
  Serious: Yes (Other)
  Sender: FDA-Public Use
  Company Number: None

PATIENT
  Age: 69 Year

DRUGS (2)
  1. GABAPENTIN 300 MG [Suspect]
     Indication: BACK PAIN
     Dosage: 1 cap 2td
     Dates: start: 20120831, end: 20121030
  2. PREGABALIN [Suspect]
     Dosage: 2 caps 75mg 2td
     Dates: start: 20121031, end: 20121128

REACTIONS (11)
  - Quality of life decreased [None]
  - Pain [None]
  - Decreased interest [None]
  - Headache [None]
  - Dizziness [None]
  - Fatigue [None]
  - Vision blurred [None]
  - Diplopia [None]
  - Faecal incontinence [None]
  - Hypersomnia [None]
  - Discomfort [None]
